FAERS Safety Report 6640376-8 (Version None)
Quarter: 2010Q1

REPORT INFORMATION
  Report Type: 
  Country: None (occurrence: None)
  Receive Date: 20100302
  Receipt Date: 20100212
  Transmission Date: 20100710
  Serious: No
  Sender: FDA-Public Use
  Company Number: 2010-00248

PATIENT
  Age: 77 Year
  Sex: Male
  Weight: 79.3795 kg

DRUGS (2)
  1. ZICAM COLD REMEDY PLUS LIQUI-LOZ [Suspect]
     Dosage: AS DIRECTED, 2-3 DAYS
     Dates: start: 20100210, end: 20100212
  2. LIPITOR [Concomitant]

REACTIONS (1)
  - AGEUSIA [None]
